FAERS Safety Report 23613975 (Version 1)
Quarter: 2024Q1

REPORT INFORMATION
  Report Type: Spontaneous
  Country: DK (occurrence: DK)
  Receive Date: 20240310
  Receipt Date: 20240310
  Transmission Date: 20240410
  Serious: Yes (Other)
  Sender: FDA-Public Use
  Company Number: DK-EMA-DD-20240130-7483181-051606

PATIENT
  Age: 16 Year
  Sex: Male

DRUGS (3)
  1. ADALIMUMAB [Suspect]
     Active Substance: ADALIMUMAB\ISOPROPYL ALCOHOL
     Indication: Acne fulminans
     Dosage: 40 MILLIGRAM, Q2WK
     Route: 058
  2. ISOTRETINOIN [Suspect]
     Active Substance: ISOTRETINOIN
     Indication: Acne fulminans
     Dosage: 20-40 MILLIGRAMAAA
     Route: 065
  3. PREDNISOLONE [Concomitant]
     Active Substance: PREDNISOLONE
     Indication: Acne fulminans
     Dosage: 25 MILLIGRAM (CONTINUED WITH 20-25 MILLIGRAM)
     Route: 065

REACTIONS (3)
  - Acne fulminans [Recovering/Resolving]
  - Seborrhoeic dermatitis [Recovering/Resolving]
  - Off label use [Unknown]
